FAERS Safety Report 15417531 (Version 1)
Quarter: 2018Q3

REPORT INFORMATION
  Report Type: Spontaneous
  Country: US (occurrence: US)
  Receive Date: 20180924
  Receipt Date: 20180924
  Transmission Date: 20181010
  Serious: No
  Sender: FDA-Public Use
  Company Number: US-SUNOVION-2018SUN003496

PATIENT
  Age: 28 Year
  Sex: Male

DRUGS (3)
  1. RISPERDAL [Concomitant]
     Active Substance: RISPERIDONE
  2. SEROQUEL [Concomitant]
     Active Substance: QUETIAPINE FUMARATE
  3. LATUDA [Suspect]
     Active Substance: LURASIDONE HYDROCHLORIDE
     Indication: BIPOLAR DISORDER
     Dosage: 20 MG, QD
     Route: 048
     Dates: start: 201808

REACTIONS (6)
  - Prostatomegaly [Unknown]
  - Penis disorder [Unknown]
  - Urine odour abnormal [Unknown]
  - Semen analysis abnormal [Unknown]
  - Skin irritation [Unknown]
  - Somnolence [Unknown]

NARRATIVE: CASE EVENT DATE: 201808
